FAERS Safety Report 26144104 (Version 1)
Quarter: 2025Q4

REPORT INFORMATION
  Report Type: Spontaneous
  Country: US (occurrence: US)
  Receive Date: 20251211
  Receipt Date: 20251211
  Transmission Date: 20260118
  Serious: Yes (Other)
  Sender: RANBAXY
  Company Number: US-SUN PHARMACEUTICAL INDUSTRIES LTD-2025R1-540593

PATIENT
  Age: 38 Year
  Sex: Male

DRUGS (1)
  1. TESTOSTERONE [Suspect]
     Active Substance: TESTOSTERONE
     Indication: Hypogonadism male
     Dosage: UNK
     Route: 030

REACTIONS (1)
  - Polycythaemia [Recovering/Resolving]
